FAERS Safety Report 8554488-5 (Version None)
Quarter: 2012Q3

REPORT INFORMATION
  Report Type: 
  Country: None (occurrence: None)
  Receive Date: 20120731
  Receipt Date: 20120614
  Transmission Date: 20120928
  Serious: Yes (Other)
  Sender: FDA-Public Use
  Company Number: JP-009507513-2012SP032701

PATIENT

DRUGS (10)
  1. REBETOL [Suspect]
     Route: 048
     Dates: end: 20120510
  2. INVESTIGATIONAL DRUG (UNSPECIFIED) [Suspect]
     Indication: HEPATITIS C
     Dosage: 1500 MG, QD
     Route: 048
     Dates: start: 20120406, end: 20120524
  3. REBETOL [Suspect]
     Indication: HEPATITIS C
     Dosage: 600 MG, QD
     Route: 048
     Dates: start: 20120406, end: 20120524
  4. TELAVIC [Suspect]
     Route: 048
     Dates: start: 20120518, end: 20120531
  5. PEG-INTRON [Suspect]
     Indication: HEPATITIS C
     Dosage: 1.5MCG/KG/WEEK
     Route: 058
     Dates: start: 20120406
  6. REBETOL [Suspect]
     Route: 048
     Dates: start: 20120511, end: 20120531
  7. RABEPRAZOLE SODIUM [Concomitant]
     Indication: PROPHYLAXIS
     Dosage: FORMULATION: POR
     Route: 048
     Dates: start: 20120406
  8. TELAVIC [Suspect]
     Route: 048
     Dates: end: 20120517
  9. RABEPRAZOLE SODIUM [Concomitant]
     Route: 048
     Dates: start: 20120406, end: 20120524
  10. TELAVIC [Suspect]
     Indication: HEPATITIS C
     Route: 048
     Dates: start: 20120406, end: 20120524

REACTIONS (1)
  - ANAEMIA [None]
